FAERS Safety Report 4951282-9 (Version None)
Quarter: 2006Q1

REPORT INFORMATION
  Report Type: 
  Country: None (occurrence: None)
  Receive Date: 20060323
  Receipt Date: 20060320
  Transmission Date: 20060701
  Serious: Yes (Hospitalization)
  Sender: FDA-Public Use
  Company Number: US-BOEHRINGER INGELHEIM PHARMACEUTICALS, INC.-2006-BP-03141BP

PATIENT
  Sex: Male

DRUGS (1)
  1. APTIVUS [Suspect]
     Route: 048

REACTIONS (3)
  - ENCEPHALOPATHY [None]
  - PORTAL HYPERTENSION [None]
  - VARICES OESOPHAGEAL [None]
